FAERS Safety Report 14576840 (Version 1)
Quarter: 2018Q1

REPORT INFORMATION
  Report Type: Spontaneous
  Country: US (occurrence: US)
  Receive Date: 20180225
  Receipt Date: 20180225
  Transmission Date: 20180509
  Serious: Yes (Life-Threatening, Hospitalization)
  Sender: FDA-Public Use
  Company Number: None

PATIENT
  Sex: Female
  Weight: 6.75 kg

DRUGS (2)
  1. ORAJEL NIGHTTIME TEETHING (BENZOCAINE) [Suspect]
     Active Substance: BENZOCAINE
     Indication: TEETHING
     Route: 048
     Dates: start: 20180221
  2. VITAMINS [Concomitant]
     Active Substance: VITAMINS

REACTIONS (4)
  - Somnolence [None]
  - Pallor [None]
  - Methaemoglobinaemia [None]
  - Lip discolouration [None]

NARRATIVE: CASE EVENT DATE: 20180221
